FAERS Safety Report 14068181 (Version 1)
Quarter: 2017Q4

REPORT INFORMATION
  Report Type: Spontaneous
  Country: US (occurrence: US)
  Receive Date: 20171009
  Receipt Date: 20171009
  Transmission Date: 20180321
  Serious: Yes (Other)
  Sender: FDA-Public Use
  Company Number: None

PATIENT
  Age: 59 Year
  Sex: Male
  Weight: 114.3 kg

DRUGS (1)
  1. GABAPENTIN 300 MG CAP [Suspect]
     Active Substance: GABAPENTIN
     Indication: PAIN IN EXTREMITY
     Dosage: ?          QUANTITY:60 CAPSULE(S);?
     Route: 048
     Dates: start: 20170901, end: 20170902

REACTIONS (3)
  - Pain in extremity [None]
  - Weight bearing difficulty [None]
  - Gait disturbance [None]

NARRATIVE: CASE EVENT DATE: 20170901
